FAERS Safety Report 7814864-2 (Version None)
Quarter: 2011Q4

REPORT INFORMATION
  Report Type: 
  Country: None (occurrence: None)
  Receive Date: 20111013
  Receipt Date: 20111013
  Transmission Date: 20120403
  Serious: Yes (Hospitalization, Disabling)
  Sender: FDA-Public Use
  Company Number: None

PATIENT
  Age: 51 Year
  Sex: Male
  Weight: 70.3075 kg

DRUGS (2)
  1. DILANTIN [Suspect]
     Indication: CONVULSION
     Dosage: 40 MG 1 1/2 1 TIME DAY TABLET
  2. CITALOPRAM HYDROBROMIDE [Suspect]
     Indication: DEPRESSION
     Dosage: 100 MG 1 2 TIMES DAY CAPSULE

REACTIONS (12)
  - ABNORMAL BEHAVIOUR [None]
  - PAIN [None]
  - HOSTILITY [None]
  - RESTLESSNESS [None]
  - SWOLLEN TONGUE [None]
  - DIPLEGIA [None]
  - SEXUAL DYSFUNCTION [None]
  - SWELLING FACE [None]
  - LIP SWELLING [None]
  - HAEMATOCHEZIA [None]
  - HAEMATEMESIS [None]
  - RASH [None]
